FAERS Safety Report 6503588-X (Version None)
Quarter: 2009Q4

REPORT INFORMATION
  Report Type: 
  Country: None (occurrence: None)
  Receive Date: 20091217
  Receipt Date: 20091209
  Transmission Date: 20100525
  Serious: Yes (Hospitalization, Other)
  Sender: FDA-Public Use
  Company Number: IT-AMGEN-QUU374937

PATIENT
  Sex: Female

DRUGS (4)
  1. ARANESP [Suspect]
     Indication: RENAL FAILURE CHRONIC
     Route: 058
     Dates: start: 20080909
  2. MYFORTIC [Concomitant]
  3. MEDROL [Concomitant]
  4. ALLOPURINOL [Concomitant]

REACTIONS (2)
  - ANAEMIA [None]
  - MARROW HYPERPLASIA [None]
